FAERS Safety Report 18057760 (Version 1)
Quarter: 2020Q3

REPORT INFORMATION
  Report Type: Spontaneous
  Country: DK (occurrence: DK)
  Receive Date: 20200723
  Receipt Date: 20200723
  Transmission Date: 20201103
  Serious: Yes (Hospitalization)
  Sender: FDA-Public Use
  Company Number: DK-ACCORD-191762

PATIENT
  Age: 98 Year
  Sex: Female

DRUGS (10)
  1. ENALAPRIL [Concomitant]
     Active Substance: ENALAPRIL
     Indication: HYPERTENSION
     Dosage: STRENGTH: 10 MG DOSAGE: 10 MG MORNING, 20 MG EVENING
     Route: 048
     Dates: start: 20200625
  2. FUROSEMIDE ACCORD [Suspect]
     Active Substance: FUROSEMIDE
     Indication: CARDIAC FAILURE
     Dosage: STRENGTH: 10 MG/ML DOSE: VARYING DOSES 10?40 MG
     Route: 042
     Dates: start: 20200622
  3. ELIQUIS [Concomitant]
     Active Substance: APIXABAN
     Indication: THROMBOSIS PROPHYLAXIS
     Dosage: STRENGTH: 2.5 MG
     Route: 048
     Dates: start: 20200622
  4. METOPROLOL SUCCINATE HEXAL [Concomitant]
     Indication: HEART RATE IRREGULAR
     Dosage: STYRKE:  50 MG
     Route: 048
     Dates: start: 20200623
  5. SODIUM CHLORIDE. [Concomitant]
     Active Substance: SODIUM CHLORIDE
     Indication: MINERAL SUPPLEMENTATION
     Dosage: STRENGTH: 250 MG
     Route: 048
     Dates: start: 20200625
  6. LERCANIDIPINE ORION [Concomitant]
     Indication: HYPERTENSION
     Dosage: STRENGTH: 10 MG
     Route: 048
     Dates: start: 20171026
  7. FURIX (FUROSEMIDE) [Suspect]
     Active Substance: FUROSEMIDE
     Indication: HYPERTENSION
     Dosage: STRENGTH: 40 MG
     Route: 048
     Dates: start: 20160825
  8. ESTRIOL [Concomitant]
     Active Substance: ESTRIOL
     Indication: HORMONE THERAPY
     Dosage: STRENGTH: 0,5 MG
     Route: 067
     Dates: start: 20110523
  9. POTASSIUM CHLORIDE 2CARE4 [Concomitant]
     Indication: MINERAL SUPPLEMENTATION
     Dosage: STRENGTH: 750 MG
     Route: 048
     Dates: start: 20160825
  10. TRIMETHOPRIM. [Concomitant]
     Active Substance: TRIMETHOPRIM
     Indication: CYSTITIS
     Dosage: STRENGTH: 100 MG
     Route: 048
     Dates: start: 20161130

REACTIONS (2)
  - Confusional state [Recovering/Resolving]
  - Hyponatraemia [Recovering/Resolving]

NARRATIVE: CASE EVENT DATE: 20200626
